FAERS Safety Report 13860394 (Version 4)
Quarter: 2017Q4

REPORT INFORMATION
  Report Type: Spontaneous
  Country: US (occurrence: US)
  Receive Date: 20170811
  Receipt Date: 20171208
  Transmission Date: 20180320
  Serious: No
  Sender: FDA-Public Use
  Company Number: US-GLAXOSMITHKLINE-US2017124376

PATIENT
  Age: 60 Year
  Sex: Female

DRUGS (8)
  1. ASPIRIN (BABY) [Concomitant]
     Active Substance: ASPIRIN
  2. FISH OIL [Concomitant]
     Active Substance: FISH OIL
  3. LORAZEPAM. [Concomitant]
     Active Substance: LORAZEPAM
  4. PRAVASTATIN. [Concomitant]
     Active Substance: PRAVASTATIN
  5. VIIBRYD [Concomitant]
     Active Substance: VILAZODONE HYDROCHLORIDE
  6. PROGESTERALL [Concomitant]
  7. SEROQUEL [Concomitant]
     Active Substance: QUETIAPINE FUMARATE
  8. ADVAIR DISKUS [Suspect]
     Active Substance: FLUTICASONE PROPIONATE\SALMETEROL XINAFOATE
     Indication: EMPHYSEMA
     Dosage: 1 PUFF(S), BID
     Route: 055
     Dates: start: 20170602

REACTIONS (3)
  - Product quality issue [Unknown]
  - Cough [Not Recovered/Not Resolved]
  - Productive cough [Not Recovered/Not Resolved]

NARRATIVE: CASE EVENT DATE: 20170805
